FAERS Safety Report 11235325 (Version 3)
Quarter: 2015Q3

REPORT INFORMATION
  Report Type: Spontaneous
  Country: JP (occurrence: None)
  Receive Date: 20150630
  Receipt Date: 20150721
  Transmission Date: 20151125
  Serious: Yes (Other)
  Sender: FDA-Public Use
  Company Number: DEP_03108_2015

PATIENT

DRUGS (3)
  1. TAPENTA (TAPENTADOL) [Suspect]
     Active Substance: TAPENTADOL HYDROCHLORIDE
     Indication: VISCERAL PAIN
     Dosage: DF ORAL
     Route: 048
  2. TAPENTA (TAPENTADOL) [Suspect]
     Active Substance: TAPENTADOL HYDROCHLORIDE
     Indication: PAIN
     Dosage: DF ORAL
     Route: 048
  3. TAPENTA (TAPENTADOL) [Suspect]
     Active Substance: TAPENTADOL HYDROCHLORIDE
     Indication: NEURALGIA
     Dosage: DF ORAL
     Route: 048

REACTIONS (4)
  - Serotonin syndrome [None]
  - Constipation [None]
  - Pain [None]
  - Nausea [None]
